FAERS Safety Report 19769225 (Version 1)
Quarter: 2021Q3

REPORT INFORMATION
  Report Type: Spontaneous
  Country: US (occurrence: US)
  Receive Date: 20210827
  Receipt Date: 20210827
  Transmission Date: 20211014
  Serious: No
  Sender: FDA-Public Use
  Company Number: None

PATIENT
  Sex: Male

DRUGS (1)
  1. BIKTARVY [Suspect]
     Active Substance: BICTEGRAVIR SODIUM\EMTRICITABINE\TENOFOVIR ALAFENAMIDE FUMARATE
     Indication: EXPOSURE TO COMMUNICABLE DISEASE
     Dosage: ?          OTHER DOSE:50/200/25;?
     Route: 048
     Dates: start: 202004

REACTIONS (2)
  - Dysuria [None]
  - Cardiac failure congestive [None]
